FAERS Safety Report 5978009-6 (Version None)
Quarter: 2008Q4

REPORT INFORMATION
  Report Type: 
  Country: None (occurrence: None)
  Receive Date: 20081125
  Receipt Date: 20081110
  Transmission Date: 20090506
  Serious: Yes (Other)
  Sender: FDA-Public Use
  Company Number: 2008S1020350

PATIENT
  Age: 42 Year
  Sex: Male

DRUGS (4)
  1. AZATHIOPRINE [Suspect]
     Indication: CONJUNCTIVITIS
     Dates: start: 20040301
  2. DAPSONE [Suspect]
     Indication: CONJUNCTIVITIS
     Dates: start: 20040401
  3. PREDNISOLONE [Suspect]
     Indication: CONJUNCTIVITIS
     Dates: start: 20040501
  4. MYCOPHENOLATE MOFETIL [Suspect]
     Indication: CONJUNCTIVITIS
     Dates: start: 20040501

REACTIONS (9)
  - CORNEAL PERFORATION [None]
  - DRUG INTOLERANCE [None]
  - EYE INFECTION BACTERIAL [None]
  - INSOMNIA [None]
  - KERATITIS BACTERIAL [None]
  - MORAXELLA INFECTION [None]
  - NAUSEA [None]
  - PSEUDOMONAS INFECTION [None]
  - STAPHYLOCOCCAL INFECTION [None]
